FAERS Safety Report 5257651-4 (Version None)
Quarter: 2007Q1

REPORT INFORMATION
  Report Type: 
  Country: None (occurrence: None)
  Receive Date: 20070307
  Receipt Date: 20070226
  Transmission Date: 20070707
  Serious: Yes (Hospitalization, Other)
  Sender: FDA-Public Use
  Company Number: US-JNJFOC-20061205080

PATIENT
  Sex: Female
  Weight: 67.59 kg

DRUGS (19)
  1. REMICADE [Suspect]
     Route: 042
  2. REMICADE [Suspect]
     Route: 042
  3. REMICADE [Suspect]
     Indication: CROHN'S DISEASE
     Dosage: THREE DOSES AND STOPPED
     Route: 042
  4. DURAGESIC-100 [Concomitant]
  5. IMURAN [Concomitant]
  6. VIOXX [Concomitant]
  7. B12 [Concomitant]
     Indication: CROHN'S DISEASE
     Route: 050
  8. FOLIC ACID [Concomitant]
     Indication: CROHN'S DISEASE
  9. DIOVAN [Concomitant]
     Indication: BLOOD PRESSURE
  10. LOMOTIL [Concomitant]
     Indication: CROHN'S DISEASE
  11. LEXAPRO [Concomitant]
  12. IRON [Concomitant]
     Indication: CROHN'S DISEASE
  13. NORVASC [Concomitant]
     Indication: BLOOD PRESSURE
  14. VITAMIN K [Concomitant]
  15. MAGNESIUM OXIDE [Concomitant]
  16. ASACOL [Concomitant]
  17. LOPRESSOR [Concomitant]
  18. PROZAC [Concomitant]
  19. VITAMIN CAP [Concomitant]

REACTIONS (7)
  - ABDOMINAL ABSCESS [None]
  - ABDOMINAL HERNIA [None]
  - HAEMATOMA [None]
  - LYMPHADENOPATHY [None]
  - MUSCLE SPASMS [None]
  - SKIN CANCER [None]
  - URINARY TRACT INFECTION [None]
